FAERS Safety Report 4547438-X (Version None)
Quarter: 2005Q1

REPORT INFORMATION
  Report Type: 
  Country: None (occurrence: None)
  Receive Date: 20050107
  Receipt Date: 20041006
  Transmission Date: 20050727
  Serious: Yes (Hospitalization)
  Sender: FDA-Public Use
  Company Number: OC0402

PATIENT
  Age: 65 Year
  Sex: Female
  Weight: 52.3 kg

DRUGS (2)
  1. LOTRONEX [Suspect]
     Indication: IRRITABLE BOWEL SYNDROME
     Dosage: 1MG PER DAY
     Route: 048
     Dates: start: 20031001
  2. UNSPECIFIED MEDICATIONS [Concomitant]

REACTIONS (1)
  - CONSTIPATION [None]
